FAERS Safety Report 10827638 (Version 1)
Quarter: 2015Q1

REPORT INFORMATION
  Report Type: Report from Study
  Country: US (occurrence: US)
  Receive Date: 20150219
  Receipt Date: 20150219
  Transmission Date: 20150721
  Serious: No
  Sender: FDA-Public Use
  Company Number: US-ABBVIE-14K-163-1326770-00

PATIENT
  Age: 66 Year
  Sex: Female

DRUGS (1)
  1. HUMIRA [Suspect]
     Active Substance: ADALIMUMAB
     Indication: PSORIASIS
     Route: 058
     Dates: start: 20131202

REACTIONS (4)
  - Onychalgia [Unknown]
  - Peripheral swelling [Unknown]
  - Staphylococcal infection [Unknown]
  - Nail psoriasis [Unknown]

NARRATIVE: CASE EVENT DATE: 20141221
